FAERS Safety Report 18435262 (Version 1)
Quarter: 2020Q4

REPORT INFORMATION
  Report Type: Spontaneous
  Country: US (occurrence: US)
  Receive Date: 20201027
  Receipt Date: 20201027
  Transmission Date: 20210114
  Serious: Yes (Other)
  Sender: FDA-Public Use
  Company Number: None

PATIENT
  Age: 65 Year
  Sex: Female
  Weight: 72.45 kg

DRUGS (7)
  1. AMLODIPINE\BENAZEPRIL [Concomitant]
     Active Substance: AMLODIPINE BESYLATE\BENAZEPRIL HYDROCHLORIDE
  2. INSULIN [Concomitant]
     Active Substance: INSULIN NOS
  3. VITAMIN D3 [Concomitant]
     Active Substance: CHOLECALCIFEROL
  4. FISH OIL SUPPLEMENTS [Concomitant]
     Active Substance: FISH OIL
  5. LANTUS SOLOSTAR [Suspect]
     Active Substance: INSULIN GLARGINE
     Indication: DIABETES MELLITUS
     Dosage: ?          OTHER STRENGTH:20 UNITS;QUANTITY:20 INJECTION(S);OTHER ROUTE:INJECTION TO ABDOMEN?
     Dates: start: 20200907, end: 20201014
  6. CRANBERRY WITH VITAMIN C [Concomitant]
  7. ATORVASTATIN CALCIUM. [Concomitant]
     Active Substance: ATORVASTATIN CALCIUM

REACTIONS (4)
  - Sleep disorder [None]
  - Fatigue [None]
  - Abdominal pain [None]
  - Injection site pain [None]

NARRATIVE: CASE EVENT DATE: 20200907
